FAERS Safety Report 4814937-2 (Version None)
Quarter: 2005Q4

REPORT INFORMATION
  Report Type: 
  Country: None (occurrence: None)
  Receive Date: 20051026
  Receipt Date: 20051013
  Transmission Date: 20060501
  Serious: Yes (Life-Threatening, Hospitalization)
  Sender: FDA-Public Use
  Company Number: 2005142652

PATIENT
  Age: 27 Year
  Sex: Female

DRUGS (2)
  1. DEPO-PROVERA [Suspect]
     Indication: CONTRACEPTION
     Dosage: 150 MG (150  MG, 1ST INJECTION, TRIMESTRAL); 150 MG, LAST INJECTION)
     Dates: start: 20050301, end: 20050301
  2. DEPO-PROVERA [Suspect]
     Indication: CONTRACEPTION
     Dosage: 150 MG (150  MG, 1ST INJECTION, TRIMESTRAL); 150 MG, LAST INJECTION)
     Dates: start: 20050610, end: 20050610

REACTIONS (2)
  - FEMUR FRACTURE [None]
  - ROAD TRAFFIC ACCIDENT [None]
